FAERS Safety Report 8450772-4 (Version None)
Quarter: 2012Q2

REPORT INFORMATION
  Report Type: 
  Country: None (occurrence: None)
  Receive Date: 20120620
  Receipt Date: 20120612
  Transmission Date: 20120825
  Serious: Yes (Hospitalization)
  Sender: FDA-Public Use
  Company Number: US-ALEXION-A201200982

PATIENT
  Sex: Male

DRUGS (2)
  1. SOLIRIS [Suspect]
     Indication: HAEMOLYTIC URAEMIC SYNDROME
     Dosage: 1200 MG, UNK
     Route: 042
     Dates: start: 20120607
  2. SOLIRIS [Suspect]
     Dosage: 900 MG, UNK
     Route: 042

REACTIONS (8)
  - BLOOD CREATININE INCREASED [None]
  - MITRAL VALVE INCOMPETENCE [None]
  - MALAISE [None]
  - DYSGEUSIA [None]
  - WEIGHT DECREASED [None]
  - ACUTE PULMONARY OEDEMA [None]
  - HYPERTENSION [None]
  - ABDOMINAL DISTENSION [None]
